FAERS Safety Report 5803307-6 (Version None)
Quarter: 2008Q3

REPORT INFORMATION
  Report Type: 
  Country: None (occurrence: None)
  Receive Date: 20080708
  Receipt Date: 20080702
  Transmission Date: 20090109
  Serious: Yes (Other)
  Sender: FDA-Public Use
  Company Number: B0527354A

PATIENT
  Age: 38 Year
  Sex: Female

DRUGS (2)
  1. SERETIDE [Suspect]
     Indication: ASTHMA
     Dosage: 2PUFF TWICE PER DAY
     Route: 055
  2. FEXOFENADINE HCL [Concomitant]
     Route: 065

REACTIONS (3)
  - ASTHMA [None]
  - CHEST DISCOMFORT [None]
  - MALAISE [None]
